FAERS Safety Report 5803016-3 (Version None)
Quarter: 2008Q2

REPORT INFORMATION
  Report Type: 
  Country: None (occurrence: None)
  Receive Date: 20080625
  Receipt Date: 20080613
  Transmission Date: 20081010
  Serious: Yes (Death)
  Sender: FDA-Public Use
  Company Number: ALB-006-08-FR

PATIENT
  Age: 53 Year
  Sex: Male

DRUGS (1)
  1. ALBUMIN (HUMAN) [Suspect]
     Dosage: 20 G I.V.
     Route: 042
     Dates: start: 20080305, end: 20080305

REACTIONS (6)
  - CARDIO-RESPIRATORY ARREST [None]
  - CHILLS [None]
  - COMA [None]
  - HEADACHE [None]
  - HYPERTENSION [None]
  - MALAISE [None]
